FAERS Safety Report 9964303 (Version 2)
Quarter: 2014Q2

REPORT INFORMATION
  Report Type: Spontaneous
  Country: US (occurrence: US)
  Receive Date: 20140305
  Receipt Date: 20140630
  Transmission Date: 20141212
  Serious: Yes (Death, Hospitalization)
  Sender: FDA-Public Use
  Company Number: US-GLAXOSMITHKLINE-A1029973A

PATIENT
  Sex: Male

DRUGS (1)
  1. AVANDIA [Suspect]
     Indication: DIABETES MELLITUS
     Dosage: 4MG PER DAY
     Route: 048
     Dates: start: 1999, end: 2004

REACTIONS (8)
  - Myocardial infarction [Unknown]
  - Coronary artery thrombosis [Fatal]
  - Cardiac failure congestive [Unknown]
  - Pulmonary oedema [Unknown]
  - Ischaemic cardiomyopathy [Unknown]
  - Pleural effusion [Unknown]
  - Arteriosclerosis coronary artery [Fatal]
  - Coronary artery disease [Unknown]
